FAERS Safety Report 18600458 (Version 1)
Quarter: 2020Q4

REPORT INFORMATION
  Report Type: Spontaneous
  Country: CA (occurrence: CA)
  Receive Date: 20201210
  Receipt Date: 20201210
  Transmission Date: 20210114
  Serious: Yes (Other)
  Sender: FDA-Public Use
  Company Number: CA-SA-2020SA308327

PATIENT

DRUGS (1)
  1. AUBAGIO [Suspect]
     Active Substance: TERIFLUNOMIDE

REACTIONS (7)
  - Paraesthesia [Unknown]
  - Sensory loss [Unknown]
  - Fatigue [Unknown]
  - Back pain [Unknown]
  - Multiple sclerosis [Unknown]
  - Condition aggravated [Unknown]
  - Hypoaesthesia [Unknown]
